FAERS Safety Report 7374542-3 (Version None)
Quarter: 2011Q1

REPORT INFORMATION
  Report Type: 
  Country: None (occurrence: None)
  Receive Date: 20110325
  Receipt Date: 20100302
  Transmission Date: 20110831
  Serious: No
  Sender: FDA-Public Use
  Company Number: US-MYLANLABS-2010S1003635

PATIENT
  Age: 85 Year
  Sex: Female
  Weight: 64.86 kg

DRUGS (3)
  1. FENTANYL-100 [Suspect]
     Indication: ARTHRALGIA
     Dosage: Q72H
     Route: 062
     Dates: start: 20100226, end: 20100227
  2. FENTANYL-100 [Suspect]
     Indication: PAIN IN EXTREMITY
     Dosage: Q72H
     Route: 062
     Dates: start: 20100226, end: 20100227
  3. NORVASC [Concomitant]
     Indication: BLOOD PRESSURE INCREASED
     Route: 048

REACTIONS (6)
  - TREMOR [None]
  - ANXIETY [None]
  - CHILLS [None]
  - NECK PAIN [None]
  - BLOOD PRESSURE INCREASED [None]
  - THERAPY NAIVE [None]
